FAERS Safety Report 25463362 (Version 1)
Quarter: 2025Q2

REPORT INFORMATION
  Report Type: Spontaneous
  Country: AU (occurrence: AU)
  Receive Date: 20250620
  Receipt Date: 20250620
  Transmission Date: 20250716
  Serious: Yes (Other)
  Sender: JAZZ
  Company Number: AU-PHARMAMAR-2025PM000187

PATIENT
  Sex: Male

DRUGS (1)
  1. ZEPZELCA [Suspect]
     Active Substance: LURBINECTEDIN
     Indication: Prostate cancer
     Dosage: 6.1 MILLIGRAM, Q3W
     Route: 042
     Dates: start: 20250306

REACTIONS (3)
  - Disease progression [Unknown]
  - Nausea [Recovering/Resolving]
  - Off label use [Unknown]

NARRATIVE: CASE EVENT DATE: 20250427
